FAERS Safety Report 9981192 (Version 2)
Quarter: 2014Q3

REPORT INFORMATION
  Report Type: Spontaneous
  Country: US (occurrence: US)
  Receive Date: 20140307
  Receipt Date: 20140904
  Transmission Date: 20150326
  Serious: Yes (Hospitalization)
  Sender: FDA-Public Use
  Company Number: US-BAYER-2014-035467

PATIENT
  Age: 18 Year
  Sex: Female
  Weight: 63.49 kg

DRUGS (13)
  1. VERSED [Concomitant]
     Active Substance: MIDAZOLAM HYDROCHLORIDE
     Dosage: 5 MG, UNK
     Route: 042
     Dates: start: 20100622
  2. DARVOCET [Concomitant]
     Active Substance: ACETAMINOPHEN\PROPOXYPHENE HYDROCHLORIDE
  3. ZITHROMAX [Concomitant]
     Active Substance: AZITHROMYCIN DIHYDRATE
  4. YAZ [Suspect]
     Active Substance: DROSPIRENONE\ETHINYL ESTRADIOL
     Indication: ACNE
     Dosage: UNK
     Dates: start: 201005, end: 201007
  5. AMOXISTAD [AMOXICILLIN TRIHYDRATE,CLAVULANATE POTASSIUM] [Concomitant]
     Dosage: 875-125MG
     Route: 048
     Dates: start: 20100517
  6. DEMEROL [Concomitant]
     Active Substance: MEPERIDINE HYDROCHLORIDE
     Dosage: 100 MG, UNK
     Route: 042
     Dates: start: 20100622
  7. PEPCID [FAMOTIDINE] [Concomitant]
  8. HURRICAINE [BENZOCAINE] [Concomitant]
     Dosage: UNK
     Route: 061
     Dates: start: 20100622
  9. METHYLPREDNISOLON [Concomitant]
     Active Substance: METHYLPREDNISOLONE
     Dosage: 4 MG, UNK
     Route: 048
     Dates: start: 20100714
  10. FLUCONAZOLE. [Concomitant]
     Active Substance: FLUCONAZOLE
     Dosage: 150 MG, UNK
     Route: 048
     Dates: start: 20100526
  11. NEXIUM [Concomitant]
     Active Substance: ESOMEPRAZOLE MAGNESIUM
     Dosage: 40 MG, UNK
     Route: 048
     Dates: start: 20100707
  12. ROCEPHIN [Concomitant]
     Active Substance: CEFTRIAXONE SODIUM
  13. AZITHROMYCIN [Concomitant]
     Active Substance: AZITHROMYCIN ANHYDROUS

REACTIONS (5)
  - Abdominal pain [None]
  - General physical health deterioration [None]
  - Pain [None]
  - Injury [None]
  - Pulmonary embolism [None]

NARRATIVE: CASE EVENT DATE: 201007
